FAERS Safety Report 26076706 (Version 2)
Quarter: 2025Q4

REPORT INFORMATION
  Report Type: Spontaneous
  Country: CN (occurrence: CN)
  Receive Date: 20251121
  Receipt Date: 20251127
  Transmission Date: 20260118
  Serious: Yes (Other)
  Sender: NOVARTIS
  Company Number: CN-002147023-NVSC2025CN177051

PATIENT
  Age: 28 Year
  Sex: Female

DRUGS (3)
  1. OXCARBAZEPINE [Suspect]
     Active Substance: OXCARBAZEPINE
     Indication: Emotional disorder
     Dosage: 0.3 G, BID
     Route: 048
     Dates: start: 20251013, end: 20251113
  2. VALPROATE SODIUM [Suspect]
     Active Substance: VALPROATE SODIUM
     Indication: Emotional disorder
     Dosage: 500 MG, BID
     Route: 048
     Dates: start: 20250708, end: 20251113
  3. RISPERIDONE [Concomitant]
     Active Substance: RISPERIDONE
     Indication: Intellectual disability
     Dosage: 2 MG, BID
     Route: 048
     Dates: start: 20250903, end: 20251113

REACTIONS (3)
  - Hyponatraemia [Recovering/Resolving]
  - Hypochloraemia [Recovering/Resolving]
  - Off label use [Unknown]

NARRATIVE: CASE EVENT DATE: 20251013
